FAERS Safety Report 4357026-6 (Version None)
Quarter: 2004Q2

REPORT INFORMATION
  Report Type: 
  Country: None (occurrence: None)
  Receive Date: 20040507
  Receipt Date: 20040426
  Transmission Date: 20050107
  Serious: Yes (Hospitalization)
  Sender: FDA-Public Use
  Company Number: US-JNJFOC-20040500148

PATIENT
  Age: 73 Year
  Sex: Male
  Weight: 102.5129 kg

DRUGS (17)
  1. INFLIXIMAB(INFLIXIMAB, RECOMBINANT) LYOPHILIZED POWDER [Suspect]
     Indication: RHEUMATOID ARTHRITIS
     Dosage: INTRAVENOUS
     Route: 042
     Dates: start: 20030519
  2. OXYCODONE HCL [Concomitant]
  3. LASIX [Concomitant]
  4. ARAVA [Concomitant]
  5. GLUCATROL (GLIPIZIDE) [Concomitant]
  6. SENNA (SENNA) [Concomitant]
  7. PREDNISONE [Concomitant]
  8. POTASSIUM (POTASSIUM) [Concomitant]
  9. CALCIUM (CALCIUM) [Concomitant]
  10. ZOLOFT [Concomitant]
  11. FOLIC ACID [Concomitant]
  12. MAGNESIUM OXIDE (MAGNESIUM OXIDE) [Concomitant]
  13. ALPRAZOLAM [Concomitant]
  14. TRAZODONE HCL [Concomitant]
  15. VICODIN [Concomitant]
  16. ALBUTEROL [Concomitant]
  17. SEREVENT [Concomitant]

REACTIONS (7)
  - ASTHENIA [None]
  - CEREBRAL ATROPHY [None]
  - CHRONIC OBSTRUCTIVE AIRWAYS DISEASE EXACERBATED [None]
  - FALL [None]
  - HAEMATOCRIT DECREASED [None]
  - HAEMOGLOBIN DECREASED [None]
  - RED BLOOD CELL SEDIMENTATION RATE INCREASED [None]
